FAERS Safety Report 7815989-8 (Version None)
Quarter: 2011Q4

REPORT INFORMATION
  Report Type: 
  Country: None (occurrence: None)
  Receive Date: 20111014
  Receipt Date: 20111005
  Transmission Date: 20120403
  Serious: Yes (Other)
  Sender: FDA-Public Use
  Company Number: US-ROCHE-782336

PATIENT
  Sex: Male
  Weight: 74.5 kg

DRUGS (7)
  1. ASPIRIN [Concomitant]
  2. CALCIUM CARBONATE [Concomitant]
  3. VEMURAFENIB [Suspect]
     Indication: MALIGNANT MELANOMA
     Dosage: LAST DOSE PRIOR TO SAE: 22 MAY 2011
     Route: 048
  4. MULTI-VITAMIN [Concomitant]
  5. HYDROCODONE BITARTRATE [Concomitant]
  6. FISH OIL [Concomitant]
  7. ASCORBIC ACID [Concomitant]

REACTIONS (1)
  - SQUAMOUS CELL CARCINOMA OF SKIN [None]
